FAERS Safety Report 7888903-7 (Version None)
Quarter: 2011Q4

REPORT INFORMATION
  Report Type: 
  Country: None (occurrence: None)
  Receive Date: 20111103
  Receipt Date: 20111031
  Transmission Date: 20120403
  Serious: Yes (Hospitalization, Other)
  Sender: FDA-Public Use
  Company Number: US-AMGEN-USASP2011056387

PATIENT
  Sex: Female

DRUGS (1)
  1. ENBREL [Suspect]
     Indication: RHEUMATOID ARTHRITIS
     Dosage: 25 MG, 2 TIMES/WK
     Dates: start: 20000223

REACTIONS (9)
  - CHEST DISCOMFORT [None]
  - LARYNGITIS [None]
  - PLEURISY [None]
  - PNEUMONIA ASPIRATION [None]
  - COUGH [None]
  - PAIN IN EXTREMITY [None]
  - PNEUMONIA [None]
  - THROAT IRRITATION [None]
  - PAIN [None]
